FAERS Safety Report 11315489 (Version 6)
Quarter: 2015Q3

REPORT INFORMATION
  Report Type: Report from Study
  Country: IT (occurrence: IT)
  Receive Date: 20150728
  Receipt Date: 20150930
  Transmission Date: 20151125
  Serious: Yes (Death, Hospitalization, Disabling)
  Sender: FDA-Public Use
  Company Number: IT-ROCHE-1610070

PATIENT
  Age: 78 Year
  Sex: Female
  Weight: 66 kg

DRUGS (64)
  1. OBINUTUZUMAB [Suspect]
     Active Substance: OBINUTUZUMAB
     Route: 042
     Dates: start: 20140430, end: 20140430
  2. SULFAMETHOXAZOLE [Concomitant]
     Active Substance: SULFAMETHOXAZOLE
  3. PARACETAMOL [Concomitant]
     Active Substance: ACETAMINOPHEN
     Route: 048
     Dates: start: 20140327, end: 20140327
  4. MYELOSTIM [Concomitant]
     Dosage: EVERY OTHER DAYS
     Route: 042
     Dates: start: 20140423, end: 20140427
  5. OBINUTUZUMAB [Suspect]
     Active Substance: OBINUTUZUMAB
     Route: 042
     Dates: start: 20140411, end: 20140411
  6. OBINUTUZUMAB [Suspect]
     Active Substance: OBINUTUZUMAB
     Route: 042
     Dates: start: 20140528, end: 20140528
  7. TRIMETON (ITALY) [Concomitant]
     Route: 042
     Dates: start: 20140528, end: 20140528
  8. COMBISARTAN [Concomitant]
     Active Substance: HYDROCHLOROTHIAZIDE\LOSARTAN POTASSIUM
     Route: 048
     Dates: start: 2005
  9. LOSEC [Concomitant]
     Active Substance: OMEPRAZOLE
     Route: 048
     Dates: start: 2008
  10. ALLOPURINOL. [Concomitant]
     Active Substance: ALLOPURINOL
     Route: 048
  11. PARACETAMOL [Concomitant]
     Active Substance: ACETAMINOPHEN
     Route: 048
     Dates: start: 20140526, end: 20140526
  12. PARACETAMOL [Concomitant]
     Active Substance: ACETAMINOPHEN
     Route: 048
     Dates: start: 20140723, end: 20140723
  13. URBASON [Concomitant]
     Active Substance: METHYLPREDNISOLONE
     Route: 042
     Dates: start: 20140404, end: 20140404
  14. URBASON [Concomitant]
     Active Substance: METHYLPREDNISOLONE
     Route: 042
     Dates: start: 20140327, end: 20140327
  15. URBASON [Concomitant]
     Active Substance: METHYLPREDNISOLONE
     Route: 042
     Dates: start: 20140411, end: 20140411
  16. MYELOSTIM [Concomitant]
     Route: 065
     Dates: start: 20140614, end: 20140614
  17. MYELOSTIM [Concomitant]
     Dosage: ONCE A DAY
     Route: 042
     Dates: start: 20140330, end: 20140401
  18. OBINUTUZUMAB [Suspect]
     Active Substance: OBINUTUZUMAB
     Route: 042
     Dates: start: 20140723, end: 20140723
  19. PARACETAMOL [Concomitant]
     Active Substance: ACETAMINOPHEN
     Route: 048
     Dates: start: 20140328, end: 20140328
  20. BACTRIM [Concomitant]
     Active Substance: SULFAMETHOXAZOLE\TRIMETHOPRIM
     Route: 048
     Dates: start: 20140331
  21. ZANTAC [Concomitant]
     Active Substance: RANITIDINE HYDROCHLORIDE
     Route: 042
     Dates: start: 20140404, end: 20140404
  22. MYELOSTIM [Concomitant]
     Dosage: EVERY OTHER DAYS
     Route: 042
     Dates: start: 20140614, end: 20140616
  23. OBINUTUZUMAB [Suspect]
     Active Substance: OBINUTUZUMAB
     Route: 042
     Dates: start: 20140328, end: 20140328
  24. OBINUTUZUMAB [Suspect]
     Active Substance: OBINUTUZUMAB
     Route: 042
     Dates: start: 20140625, end: 20140625
  25. TRIMETON (ITALY) [Concomitant]
     Route: 042
     Dates: start: 20140404, end: 20140404
  26. TRIMETHOPRIM. [Concomitant]
     Active Substance: TRIMETHOPRIM
  27. LEVOFLOXACIN. [Concomitant]
     Active Substance: LEVOFLOXACIN
     Route: 048
     Dates: start: 20140329, end: 20140403
  28. VALACYCLOVIR [Concomitant]
     Active Substance: VALACYCLOVIR HYDROCHLORIDE
  29. URBASON [Concomitant]
     Active Substance: METHYLPREDNISOLONE
     Route: 042
     Dates: start: 20140328, end: 20140328
  30. ZELITREX [Concomitant]
     Active Substance: VALACYCLOVIR HYDROCHLORIDE
     Route: 048
     Dates: start: 20140329
  31. ZANTAC [Concomitant]
     Active Substance: RANITIDINE HYDROCHLORIDE
     Route: 042
     Dates: start: 20140625, end: 20140625
  32. KYTRIL [Concomitant]
     Active Substance: GRANISETRON HYDROCHLORIDE
     Route: 042
     Dates: start: 20140327, end: 20140327
  33. OBINUTUZUMAB [Suspect]
     Active Substance: OBINUTUZUMAB
     Route: 042
     Dates: start: 20140404, end: 20140404
  34. TRIMETON (ITALY) [Concomitant]
     Route: 042
     Dates: start: 20140430, end: 20140430
  35. ITRACONAZOLE. [Concomitant]
     Active Substance: ITRACONAZOLE
     Route: 048
     Dates: start: 20140329, end: 20140403
  36. CHLORPHENAMINE MALEATE [Concomitant]
     Active Substance: CHLORPHENIRAMINE MALEATE
  37. PARACETAMOL [Concomitant]
     Active Substance: ACETAMINOPHEN
     Route: 048
     Dates: start: 20140625, end: 20140625
  38. URBASON [Concomitant]
     Active Substance: METHYLPREDNISOLONE
     Route: 042
     Dates: start: 20140528, end: 20140528
  39. URBASON [Concomitant]
     Active Substance: METHYLPREDNISOLONE
     Route: 042
     Dates: start: 20140625, end: 20140625
  40. ZANTAC [Concomitant]
     Active Substance: RANITIDINE HYDROCHLORIDE
     Route: 042
     Dates: start: 20140430, end: 20140430
  41. ZANTAC [Concomitant]
     Active Substance: RANITIDINE HYDROCHLORIDE
     Route: 042
     Dates: start: 20140723, end: 20140723
  42. MYELOSTIM [Concomitant]
     Dosage: EVERY OTHER DAYS
     Route: 042
     Dates: start: 20140514, end: 20140518
  43. MYELOSTIM [Concomitant]
     Dosage: EVERY OTHER DAYS
     Route: 042
     Dates: start: 20140707, end: 20140707
  44. RITUXIMAB [Suspect]
     Active Substance: RITUXIMAB
     Indication: CHRONIC LYMPHOCYTIC LEUKAEMIA
     Dosage: 1 X 500 MG 50 ML VIAL?FREQUENCY, DATES AND DOSES AS PER GQ: C1 AT 375MG/KG, C2-6 AT 500MG/KG. 6 CYCL
     Route: 042
     Dates: start: 20130104, end: 20130523
  45. BENDAMUSTINE [Suspect]
     Active Substance: BENDAMUSTINE
     Indication: CHRONIC LYMPHOCYTIC LEUKAEMIA
     Route: 042
     Dates: start: 20130103, end: 20130523
  46. PLENDIL [Concomitant]
     Active Substance: FELODIPINE
     Route: 048
     Dates: start: 2005
  47. PARACETAMOL [Concomitant]
     Active Substance: ACETAMINOPHEN
     Route: 042
     Dates: start: 20140404, end: 20140404
  48. ZANTAC [Concomitant]
     Active Substance: RANITIDINE HYDROCHLORIDE
     Route: 042
     Dates: start: 20140411, end: 20140411
  49. MYELOSTIM [Concomitant]
     Route: 065
     Dates: start: 20140616, end: 20140616
  50. MYELOSTIM [Concomitant]
     Dosage: SINGLE DOSE
     Route: 042
     Dates: start: 20140406, end: 20140407
  51. TRIMETON (ITALY) [Concomitant]
     Route: 042
     Dates: start: 20140411, end: 20140411
  52. TRIMETON (ITALY) [Concomitant]
     Route: 042
     Dates: start: 20140723, end: 20140723
  53. PARACETAMOL [Concomitant]
     Active Substance: ACETAMINOPHEN
     Route: 048
     Dates: start: 20140430, end: 20140430
  54. RANITIDINE [Concomitant]
     Active Substance: RANITIDINE\RANITIDINE HYDROCHLORIDE
  55. URBASON [Concomitant]
     Active Substance: METHYLPREDNISOLONE
     Route: 042
     Dates: start: 20140430, end: 20140430
  56. ZANTAC [Concomitant]
     Active Substance: RANITIDINE HYDROCHLORIDE
     Indication: PROPHYLAXIS
     Route: 042
     Dates: start: 20140327, end: 20140328
  57. ZANTAC [Concomitant]
     Active Substance: RANITIDINE HYDROCHLORIDE
     Route: 065
     Dates: start: 20140528, end: 20140528
  58. MYELOSTIM [Concomitant]
     Dosage: EVERY OTHER DAYS
     Route: 042
     Dates: start: 20140710, end: 20140710
  59. OBINUTUZUMAB [Suspect]
     Active Substance: OBINUTUZUMAB
     Indication: CHRONIC LYMPHOCYTIC LEUKAEMIA
     Dosage: DISCONTINUED ON 01/AUG/2014
     Route: 042
     Dates: start: 20140327, end: 20140327
  60. TRIMETON (ITALY) [Concomitant]
     Route: 042
     Dates: start: 20140327, end: 20140327
  61. TRIMETON (ITALY) [Concomitant]
     Route: 042
     Dates: start: 20140328, end: 20140328
  62. PARACETAMOL [Concomitant]
     Active Substance: ACETAMINOPHEN
     Route: 048
     Dates: start: 20140411, end: 20140411
  63. URBASON [Concomitant]
     Active Substance: METHYLPREDNISOLONE
     Route: 042
     Dates: start: 20140327, end: 20140327
  64. URBASON [Concomitant]
     Active Substance: METHYLPREDNISOLONE
     Route: 042
     Dates: start: 20140723, end: 20140723

REACTIONS (1)
  - Progressive multifocal leukoencephalopathy [Fatal]

NARRATIVE: CASE EVENT DATE: 20140603
